FAERS Safety Report 5564607-0 (Version None)
Quarter: 2007Q4

REPORT INFORMATION
  Report Type: 
  Country: None (occurrence: None)
  Receive Date: 20071212
  Receipt Date: 20071206
  Transmission Date: 20080405
  Serious: Yes (Other)
  Sender: FDA-Public Use
  Company Number: E2090-00341-SPO-JP

PATIENT
  Age: 72 Year
  Sex: Female

DRUGS (3)
  1. ZONISAMIDE [Suspect]
     Indication: CONVULSION PROPHYLAXIS
     Dosage: 200 MG, 1 IN 1 D, ORAL; 300 MG, 1 IN 1 D, ORAL
     Route: 048
     Dates: start: 20070821, end: 20070827
  2. ZONISAMIDE [Suspect]
     Indication: CONVULSION PROPHYLAXIS
     Dosage: 200 MG, 1 IN 1 D, ORAL; 300 MG, 1 IN 1 D, ORAL
     Route: 048
     Dates: start: 20070828, end: 20071017
  3. PAXIL [Concomitant]

REACTIONS (2)
  - DRUG RASH WITH EOSINOPHILIA AND SYSTEMIC SYMPTOMS [None]
  - NO THERAPEUTIC RESPONSE [None]
